FAERS Safety Report 6460150-5 (Version None)
Quarter: 2009Q4

REPORT INFORMATION
  Report Type: 
  Country: None (occurrence: None)
  Receive Date: 20091129
  Receipt Date: 20091117
  Transmission Date: 20100525
  Serious: Yes (Hospitalization)
  Sender: FDA-Public Use
  Company Number: CH-ELI_LILLY_AND_COMPANY-CH200911004657

PATIENT
  Age: 38 Year
  Sex: Male
  Weight: 65 kg

DRUGS (4)
  1. ALIMTA [Suspect]
     Indication: LUNG ADENOCARCINOMA METASTATIC
     Dosage: 800 MG, UNKNOWN
     Route: 042
     Dates: start: 20091103, end: 20091101
  2. CISPLATIN [Concomitant]
     Indication: LUNG ADENOCARCINOMA METASTATIC
     Dosage: 600 MG, UNKNOWN (DRIP)
     Route: 042
     Dates: start: 20091103
  3. KIVEXA [Concomitant]
     Indication: HIV INFECTION
     Dosage: UNK, DAILY (1/D) (ABACAVIR 600MG; LAMIVUDINE 300MG)
     Route: 048
  4. VIRAMUNE [Concomitant]
     Indication: HIV INFECTION
     Dosage: 200 MG, 2/D
     Route: 048

REACTIONS (1)
  - NEURALGIA [None]
